FAERS Safety Report 18437837 (Version 7)
Quarter: 2021Q1

REPORT INFORMATION
  Report Type: Report from Study
  Country: FR (occurrence: FR)
  Receive Date: 20201028
  Receipt Date: 20210311
  Transmission Date: 20210419
  Serious: Yes (Hospitalization)
  Sender: FDA-Public Use
  Company Number: NVSC2020FR279684

PATIENT
  Age: 54 Year
  Sex: Male

DRUGS (1)
  1. NVF233 [Suspect]
     Active Substance: INTERFERON BETA-1B
     Indication: COVID-19
     Dosage: UNK
     Route: 055
     Dates: start: 20200921, end: 20201003

REACTIONS (4)
  - Cholestasis [Recovered/Resolved]
  - Phlebitis [Recovering/Resolving]
  - Pulmonary embolism [Recovering/Resolving]
  - Hepatocellular injury [Recovered/Resolved]

NARRATIVE: CASE EVENT DATE: 20200922
